FAERS Safety Report 9215090 (Version 1)
Quarter: 2013Q2

REPORT INFORMATION
  Report Type: Spontaneous
  Country: GB (occurrence: GB)
  Receive Date: 20130405
  Receipt Date: 20130405
  Transmission Date: 20140414
  Serious: Yes (Other)
  Sender: FDA-Public Use
  Company Number: PHHY2013GB032737

PATIENT
  Age: 66 Year
  Sex: Male

DRUGS (5)
  1. ATORVASTATIN [Suspect]
     Dosage: 10 MG, QD
     Route: 048
     Dates: start: 201208
  2. VERATIL [Interacting]
     Dosage: 240 MG, QD
     Route: 048
  3. METFORMIN [Concomitant]
     Dosage: 2 DF, BID
  4. GLIPIZIDE [Concomitant]
     Dosage: 1 DF, TID
  5. EXENATIDE [Concomitant]
     Dosage: 1 DF, BID

REACTIONS (2)
  - Palpitations [Not Recovered/Not Resolved]
  - Drug interaction [Not Recovered/Not Resolved]
